FAERS Safety Report 6957013-5 (Version None)
Quarter: 2010Q3

REPORT INFORMATION
  Report Type: 
  Country: None (occurrence: None)
  Receive Date: 20100827
  Receipt Date: 20100827
  Transmission Date: 20110219
  Serious: Yes (Hospitalization)
  Sender: FDA-Public Use
  Company Number: None

PATIENT
  Sex: Female
  Weight: 57.3 kg

DRUGS (5)
  1. IXABEPILONE [Suspect]
     Indication: BREAST CANCER
     Dosage: 16MG/M2 ON DAYS 2, 9 +16, LAST GIVEN ON 8/10/10
     Dates: end: 20100810
  2. VORINOSTAT [Suspect]
     Indication: BREAST CANCER
     Dosage: PO DAILY ON DAYS 1-7+15, LAST TAKEN ON 8/14/10
     Dates: end: 20100814
  3. WARFARIN SODIUM [Concomitant]
  4. HALCION [Concomitant]
  5. VICODIN [Concomitant]

REACTIONS (1)
  - DEHYDRATION [None]
